FAERS Safety Report 4938799-8 (Version None)
Quarter: 2006Q1

REPORT INFORMATION
  Report Type: 
  Country: None (occurrence: None)
  Receive Date: 20060131
  Receipt Date: 20051213
  Transmission Date: 20060701
  Serious: No
  Sender: FDA-Public Use
  Company Number: 200520360US

PATIENT
  Age: 49 Year
  Sex: Male

DRUGS (4)
  1. KETEK [Suspect]
     Indication: RESPIRATORY TRACT INFECTION
     Dosage: 800 MG/DAY PO
     Route: 048
     Dates: start: 20051027
  2. MOXIFLOXACIN HYDROCHLORIDE (AVELOX) [Concomitant]
  3. CAPOTEN [Concomitant]
  4. WARFARIN [Concomitant]

REACTIONS (2)
  - VISION BLURRED [None]
  - VISUAL DISTURBANCE [None]
